FAERS Safety Report 8405098-1 (Version None)
Quarter: 2012Q2

REPORT INFORMATION
  Report Type: 
  Country: None (occurrence: None)
  Receive Date: 20120602
  Receipt Date: 20120524
  Transmission Date: 20120825
  Serious: Yes (Other)
  Sender: FDA-Public Use
  Company Number: US-BAYER-2012-053100

PATIENT
  Age: 77 Year
  Sex: Male
  Weight: 109 kg

DRUGS (1)
  1. NEO-SYNEPHRINE EXTRA STRENGTH [Suspect]
     Dosage: 5 OZ DISC

REACTIONS (2)
  - EYE DISCHARGE [None]
  - EYE INFECTION [None]
